FAERS Safety Report 22863522 (Version 2)
Quarter: 2024Q3

REPORT INFORMATION
  Report Type: Spontaneous
  Country: CA (occurrence: CA)
  Receive Date: 20230825
  Receipt Date: 20240902
  Transmission Date: 20241016
  Serious: Yes (Hospitalization, Other)
  Sender: GALDERMA
  Company Number: CA-GALDERMA-CA2023012416

PATIENT

DRUGS (1)
  1. DOXYCYCLINE [Suspect]
     Active Substance: DOXYCYCLINE\DOXYCYCLINE HYCLATE
     Indication: Acne
     Dosage: 1 DOSAGE FORM
     Route: 048

REACTIONS (8)
  - Duodenitis [Recovered/Resolved]
  - Erosive oesophagitis [Recovered/Resolved]
  - Gastric ulcer [Recovered/Resolved]
  - Mouth ulceration [Recovered/Resolved]
  - Petechiae [Recovered/Resolved]
  - Intentional product use issue [Recovered/Resolved]
  - Off label use [Recovered/Resolved]
  - Product administered to patient of inappropriate age [Recovered/Resolved]
